FAERS Safety Report 7669451-6 (Version None)
Quarter: 2011Q3

REPORT INFORMATION
  Report Type: 
  Country: None (occurrence: None)
  Receive Date: 20110803
  Receipt Date: 20110721
  Transmission Date: 20111222
  Serious: Yes (Hospitalization)
  Sender: FDA-Public Use
  Company Number: AUR-APL-2011-04300

PATIENT
  Age: 42 Year
  Sex: Female

DRUGS (1)
  1. LAMOTRIGINE [Suspect]
     Indication: CONVULSION
     Dosage: 200 MG (100 MG, 2 IN 1 D0, ORAL
     Route: 048

REACTIONS (11)
  - OVERDOSE [None]
  - BLOOD PRESSURE INCREASED [None]
  - GRAND MAL CONVULSION [None]
  - COMA SCALE ABNORMAL [None]
  - MUSCLE RIGIDITY [None]
  - BLOOD GLUCOSE INCREASED [None]
  - SUICIDE ATTEMPT [None]
  - SOMNOLENCE [None]
  - HYPERTONIA [None]
  - UNRESPONSIVE TO STIMULI [None]
  - DEPRESSED LEVEL OF CONSCIOUSNESS [None]
